FAERS Safety Report 5602911-8 (Version None)
Quarter: 2008Q1

REPORT INFORMATION
  Report Type: 
  Country: None (occurrence: None)
  Receive Date: 20080125
  Receipt Date: 20080103
  Transmission Date: 20080703
  Serious: No
  Sender: FDA-Public Use
  Company Number: US-BOEHRINGER INGELHEIM PHARMACEUTICALS, INC.-2007-BP-22389BP

PATIENT
  Age: 60 Year
  Sex: Male

DRUGS (5)
  1. FLOMAX [Suspect]
     Indication: BENIGN PROSTATIC HYPERPLASIA
     Route: 048
     Dates: start: 20061001
  2. NORVASC [Concomitant]
     Indication: HYPERTENSION
  3. LORAZEPAM [Concomitant]
  4. NEXIUM [Concomitant]
  5. WELLCHOL [Concomitant]
     Indication: BLOOD CHOLESTEROL

REACTIONS (7)
  - DRY MOUTH [None]
  - GROIN PAIN [None]
  - INFERTILITY MALE [None]
  - PAIN IN EXTREMITY [None]
  - PENILE PAIN [None]
  - SENSORY LOSS [None]
  - SPERMATOZOA ABNORMAL [None]
